FAERS Safety Report 8406074-5 (Version None)
Quarter: 2012Q2

REPORT INFORMATION
  Report Type: 
  Country: None (occurrence: None)
  Receive Date: 20120529
  Receipt Date: 20030722
  Transmission Date: 20120825
  Serious: Yes (Death, Life-Threatening, Other)
  Sender: FDA-Public Use
  Company Number: 02100-JPN-03-0146

PATIENT
  Age: 65 Year
  Sex: Female

DRUGS (16)
  1. ASPIRIN [Suspect]
     Indication: VASCULAR STENOSIS
     Dosage: 100 MG, QD, ORAL; 100 MG, QD, ORAL
     Route: 048
     Dates: start: 20030711, end: 20030718
  2. ASPIRIN [Suspect]
     Indication: VASCULAR OCCLUSION
     Dosage: 100 MG, QD, ORAL; 100 MG, QD, ORAL
     Route: 048
     Dates: start: 20030711, end: 20030718
  3. ASPIRIN [Suspect]
     Indication: PROPHYLAXIS
     Dosage: 100 MG, QD, ORAL; 100 MG, QD, ORAL
     Route: 048
     Dates: start: 20030711, end: 20030718
  4. ASPIRIN [Suspect]
     Indication: VASCULAR STENOSIS
     Dosage: 100 MG, QD, ORAL; 100 MG, QD, ORAL
     Route: 048
     Dates: start: 20030529, end: 20030613
  5. ASPIRIN [Suspect]
     Indication: VASCULAR OCCLUSION
     Dosage: 100 MG, QD, ORAL; 100 MG, QD, ORAL
     Route: 048
     Dates: start: 20030529, end: 20030613
  6. ASPIRIN [Suspect]
     Indication: PROPHYLAXIS
     Dosage: 100 MG, QD, ORAL; 100 MG, QD, ORAL
     Route: 048
     Dates: start: 20030529, end: 20030613
  7. SELBEX (TEPRENONE) [Concomitant]
  8. TRANEXAMIC ACID [Concomitant]
  9. CONIEL (BENIDIPINE HYDROCHLORIDE) [Concomitant]
  10. ISOTONIC SALINE (ISOTONIC SALINE) [Concomitant]
  11. PIPERACILLIN SODIUM [Concomitant]
  12. STRONGER NEO-MINOPHAGEN C [Concomitant]
  13. OMEPRAZOLE [Concomitant]
  14. ADONA (CARBAZOCHROME SODIUM SULFONATE) [Concomitant]
  15. PLETAL (CILOSTAZOL) TABLET, 50MG MILLIGRAM(S) [Suspect]
     Indication: VASCULAR OCCLUSION
     Dosage: 50 MG, TID, ORAL
     Route: 048
     Dates: start: 20030617, end: 20030711
  16. PLETAL (CILOSTAZOL) TABLET, 50MG MILLIGRAM(S) [Suspect]
     Indication: PROPHYLAXIS
     Dosage: 50 MG, TID, ORAL
     Route: 048
     Dates: start: 20030617, end: 20030711

REACTIONS (8)
  - FALL [None]
  - POSTOPERATIVE WOUND COMPLICATION [None]
  - PLEURITIC PAIN [None]
  - SUBARACHNOID HAEMORRHAGE [None]
  - THROMBOCYTOPENIA [None]
  - HAEMOGLOBIN DECREASED [None]
  - COMA [None]
  - RESPIRATORY ARREST [None]
